FAERS Safety Report 4896092-6 (Version None)
Quarter: 2005Q4

REPORT INFORMATION
  Report Type: 
  Country: None (occurrence: None)
  Receive Date: 20051220
  Receipt Date: 20050929
  Transmission Date: 20060501
  Serious: Yes (Other)
  Sender: FDA-Public Use
  Company Number: US141726

PATIENT
  Age: 47 Year
  Sex: Female

DRUGS (4)
  1. ENBREL [Suspect]
     Indication: PSORIASIS
     Dosage: 50 MG, 2 IN 1 WEEKS, SC
     Route: 058
     Dates: start: 20040801, end: 20050707
  2. ENALAPRIL MALEATE [Concomitant]
  3. ESTROGENS CONJUGATED [Concomitant]
  4. CETIRIZINE HYDROCHLORIDE [Concomitant]

REACTIONS (4)
  - CONDITION AGGRAVATED [None]
  - LIVER FUNCTION TEST ABNORMAL [None]
  - PANCYTOPENIA [None]
  - PSORIASIS [None]
